FAERS Safety Report 5873242-6 (Version None)
Quarter: 2008Q3

REPORT INFORMATION
  Report Type: 
  Country: None (occurrence: None)
  Receive Date: 20080908
  Receipt Date: 20080901
  Transmission Date: 20090109
  Serious: Yes (Hospitalization)
  Sender: FDA-Public Use
  Company Number: DK-KINGPHARMUSA00001-K200801018

PATIENT

DRUGS (1)
  1. EPIPEN [Suspect]
     Dosage: .3 MG, SINGLE
     Dates: start: 20080726, end: 20080726

REACTIONS (2)
  - ACCIDENTAL EXPOSURE [None]
  - SKELETAL INJURY [None]
